FAERS Safety Report 7346144-6 (Version None)
Quarter: 2011Q1

REPORT INFORMATION
  Report Type: 
  Country: None (occurrence: None)
  Receive Date: 20110311
  Receipt Date: 20110225
  Transmission Date: 20110831
  Serious: Yes (Other)
  Sender: FDA-Public Use
  Company Number: US-BAYER-201036579NA

PATIENT
  Sex: Female
  Weight: 117 kg

DRUGS (8)
  1. OCELLA [Suspect]
     Indication: PREMENSTRUAL SYNDROME
     Dosage: UNK
     Dates: start: 20010101, end: 20091001
  2. ORTHO TRI-CYCLEN LO [Concomitant]
  3. NEXIUM [Concomitant]
     Indication: GASTRITIS
     Dosage: UNK
     Dates: start: 20050701
  4. YASMIN [Suspect]
     Indication: PRODUCT USED FOR UNKNOWN INDICATION
     Route: 048
     Dates: start: 20010101, end: 20091001
  5. YAZ [Suspect]
     Route: 048
     Dates: start: 20010101, end: 20091001
  6. DESOGEN [Concomitant]
  7. NEXIUM [Concomitant]
     Indication: GASTROOESOPHAGEAL REFLUX DISEASE
  8. ANTIBIOTICS [Concomitant]

REACTIONS (8)
  - ABDOMINAL PAIN [None]
  - ABDOMINAL DISTENSION [None]
  - CHEST PAIN [None]
  - IRRITABLE BOWEL SYNDROME [None]
  - DIARRHOEA [None]
  - GALLBLADDER DISORDER [None]
  - VOMITING [None]
  - NAUSEA [None]
